FAERS Safety Report 10944924 (Version 1)
Quarter: 2015Q1

REPORT INFORMATION
  Report Type: Spontaneous
  Country: AU (occurrence: None)
  Receive Date: 20150318
  Receipt Date: 20150318
  Transmission Date: 20150721
  Serious: Yes (Hospitalization, Other)
  Sender: FDA-Public Use
  Company Number: AU-ZYDUS-007100

PATIENT
  Age: 71 Year
  Sex: Male

DRUGS (3)
  1. TELMISARTAN. [Concomitant]
     Active Substance: TELMISARTAN
  2. AMIODARONE [Suspect]
     Active Substance: AMIODARONE
  3. RIVAROXABAN [Suspect]
     Active Substance: RIVAROXABAN

REACTIONS (3)
  - Drug interaction [None]
  - Coagulation test abnormal [None]
  - Pulmonary haemorrhage [None]
